FAERS Safety Report 9526053 (Version 2)
Quarter: 2013Q4

REPORT INFORMATION
  Report Type: Report from Study
  Country: US (occurrence: US)
  Receive Date: 20130916
  Receipt Date: 20131010
  Transmission Date: 20140711
  Serious: Yes (Hospitalization)
  Sender: FDA-Public Use
  Company Number: US-ROCHE-1273384

PATIENT
  Sex: Male

DRUGS (16)
  1. XOLAIR [Suspect]
     Indication: ASTHMA
     Route: 065
     Dates: start: 20130517
  2. XOLAIR [Suspect]
     Indication: CONJUNCTIVITIS ALLERGIC
     Route: 065
     Dates: start: 20130806
  3. XOLAIR [Suspect]
     Indication: URTICARIA CHRONIC
  4. RANIDINE [Concomitant]
     Indication: URTICARIA
     Dosage: 150MG/10ML, TAKE 1 TEASPOON DAILY FOR HIVES
     Route: 065
  5. XOPENEX HFA [Concomitant]
     Indication: WHEEZING
     Dosage: 2 PUFFS INHALED 4 X DAY
     Route: 065
  6. XOPENEX HFA [Concomitant]
     Indication: DYSPNOEA
  7. FLUTICASONE [Concomitant]
     Dosage: 2 SPRAY BOTH NOSTRILES DAILY
     Route: 065
  8. TRIAMCINOLONE [Concomitant]
     Dosage: APPLY TO SKIN TWO TIMES DAILY, 12 HOURS
     Route: 065
  9. FLUTICASONE PROPIONATE/SALMETEROL [Concomitant]
     Dosage: 115-21 MCG/ ACT 2 PUFFS X DAILY
     Route: 065
  10. EPIPEN JR [Concomitant]
     Indication: ANAPHYLACTIC REACTION
     Dosage: 0.15MG IN 0.3ML PRN FOR ANAPHYLAXIS
     Route: 065
  11. VENTOLIN HFA [Concomitant]
     Indication: WHEEZING
     Dosage: 108MCG/ACT 2 PUFFS EVERY 4HRS
     Route: 065
  12. BENADRYL ALLERGY (UNITED STATES) [Concomitant]
     Dosage: 12.5MG/5ML
     Route: 048
  13. ALBUTEROL [Concomitant]
     Dosage: 1.25 MG IN 3ML
     Route: 065
  14. BUDESONIDE [Concomitant]
     Dosage: 0.5 MG IN 2 ML
     Route: 065
  15. CETIRIZINE [Concomitant]
     Dosage: 1MG/1ML. TAKE 7.5ML PO DAILY
     Route: 048
  16. DESONIDE [Concomitant]
     Indication: SKIN EXFOLIATION
     Dosage: APPLY TO SKIN ONCE DAY PRN
     Route: 065

REACTIONS (7)
  - Dehydration [Unknown]
  - Urticaria [Recovered/Resolved]
  - Cough [Unknown]
  - Dyspnoea [Unknown]
  - Furuncle [Recovered/Resolved]
  - Oropharyngeal pain [Unknown]
  - Oedema mucosal [Unknown]
